FAERS Safety Report 12025449 (Version 1)
Quarter: 2016Q1

REPORT INFORMATION
  Report Type: Spontaneous
  Country: US (occurrence: US)
  Receive Date: 20160206
  Receipt Date: 20160206
  Transmission Date: 20160526
  Serious: Yes (Life-Threatening, Hospitalization)
  Sender: FDA-Public Use
  Company Number: US-TEVA-632761USA

PATIENT
  Age: 62 Year
  Sex: Female

DRUGS (7)
  1. TETRACYCLINE [Suspect]
     Active Substance: TETRACYCLINE
  2. COLISTIN [Suspect]
     Active Substance: COLISTIN
     Dosage: 300MG LOAD
  3. PIPERACILLIN [Concomitant]
     Active Substance: PIPERACILLIN
     Dosage: INFUSED OVER FOUR HOURS
  4. GENTAMICIN. [Suspect]
     Active Substance: GENTAMICIN
     Route: 042
  5. VANCOMYCIN [Concomitant]
     Active Substance: VANCOMYCIN
     Route: 042
  6. CEFEPIME [Suspect]
     Active Substance: CEFEPIME HYDROCHLORIDE
  7. MEROPENEM. [Concomitant]
     Active Substance: MEROPENEM

REACTIONS (4)
  - Drug resistance [Unknown]
  - Renal injury [Unknown]
  - Mental status changes [Not Recovered/Not Resolved]
  - Metabolic acidosis [Unknown]
